FAERS Safety Report 16244589 (Version 1)
Quarter: 2019Q2

REPORT INFORMATION
  Report Type: Spontaneous
  Country: JP (occurrence: JP)
  Receive Date: 20190426
  Receipt Date: 20190426
  Transmission Date: 20190711
  Serious: Yes (Other)
  Sender: FDA-Public Use
  Company Number: JP-GILEAD-2019-0395924AA

PATIENT
  Age: 7 Decade
  Sex: Male

DRUGS (1)
  1. EPCLUSA [Suspect]
     Active Substance: SOFOSBUVIR\VELPATASVIR
     Indication: HEPATIC CIRRHOSIS
     Dosage: 1 DF
     Route: 048
     Dates: start: 20190227

REACTIONS (1)
  - Gastrointestinal polyp haemorrhage [Unknown]

NARRATIVE: CASE EVENT DATE: 20190311
